FAERS Safety Report 8997220 (Version 5)
Quarter: 2013Q3

REPORT INFORMATION
  Report Type: Report from Study
  Country: CA (occurrence: CA)
  Receive Date: 20130104
  Receipt Date: 20130723
  Transmission Date: 20140515
  Serious: Yes (Life-Threatening, Hospitalization, Other)
  Sender: FDA-Public Use
  Company Number: CA-TEVA-378940USA

PATIENT
  Age: 75 Year
  Sex: Female

DRUGS (7)
  1. BENDAMUSTINE [Suspect]
     Indication: B-CELL LYMPHOMA
     Dosage: CYCLICAL
     Route: 042
     Dates: start: 20120725
  2. RITUXIMAB [Suspect]
     Indication: B-CELL LYMPHOMA
     Dosage: 615 ML
     Route: 042
     Dates: start: 20120725
  3. EZETROL [Concomitant]
  4. DIPHENHYDRAMINE [Concomitant]
     Dates: start: 20120725
  5. HYDROCORTISONE SODIUM SUCCINATE [Concomitant]
     Dates: start: 20120725
  6. ALLOPURINOL [Concomitant]
     Dates: start: 20120725
  7. GRANISETRON [Concomitant]
     Indication: NAUSEA
     Dates: start: 20120725

REACTIONS (4)
  - Cardiogenic shock [Recovered/Resolved]
  - Multi-organ failure [Recovered/Resolved]
  - Cardiac failure [Recovered/Resolved]
  - Thrombocytopenia [Recovered/Resolved]
